FAERS Safety Report 7582496-X (Version None)
Quarter: 2011Q2

REPORT INFORMATION
  Report Type: 
  Country: None (occurrence: None)
  Receive Date: 20110630
  Receipt Date: 20110625
  Transmission Date: 20111010
  Serious: No
  Sender: FDA-Public Use
  Company Number: US-PFIZER INC-2010147062

PATIENT
  Sex: Female
  Weight: 88.435 kg

DRUGS (12)
  1. METFORMIN [Concomitant]
     Indication: DIABETES MELLITUS
     Dosage: 500 MG, 2X/DAY
     Route: 048
  2. GEMFIBROZIL [Concomitant]
     Indication: BLOOD TRIGLYCERIDES INCREASED
     Dosage: 600 MG, 2X/DAY
     Route: 048
  3. HYDROCHLOROTHIAZIDE [Concomitant]
     Indication: FLUID RETENTION
     Dosage: 25 MG, 1X/DAY
     Route: 048
  4. ATENOLOL [Concomitant]
     Indication: HEART RATE INCREASED
  5. LAMOTRIGINE [Concomitant]
     Indication: DEPRESSION
     Dosage: UNK MG, 2X/DAY
     Route: 048
  6. ABILIFY [Concomitant]
     Indication: BIPOLAR DISORDER
     Dosage: 15 MG, 1X/DAY
     Route: 048
  7. CHANTIX [Suspect]
     Dosage: 1 MG, 2X/DAY
     Route: 048
     Dates: start: 20101101, end: 20101112
  8. DEXLANSOPRAZOLE [Concomitant]
     Indication: OESOPHAGITIS
     Dosage: 60 MG, 1X/DAY
     Route: 048
  9. KLONOPIN [Concomitant]
     Indication: PANIC ATTACK
     Dosage: 0.5 MG, 2X/DAY
     Route: 048
  10. ATENOLOL [Concomitant]
     Indication: HYPERTENSION
     Dosage: 25 MG, 1X/DAY
     Route: 048
  11. HYDROCHLOROTHIAZIDE [Concomitant]
     Indication: BLOOD PRESSURE MANAGEMENT
  12. CHANTIX [Suspect]
     Indication: SMOKING CESSATION THERAPY
     Dosage: 0.5 MG, 1X/DAY
     Route: 048
     Dates: start: 20101103, end: 20101101

REACTIONS (1)
  - PRURITUS GENERALISED [None]
